FAERS Safety Report 18364174 (Version 4)
Quarter: 2021Q1

REPORT INFORMATION
  Report Type: Report from Study
  Country: PL (occurrence: PL)
  Receive Date: 20201009
  Receipt Date: 20210108
  Transmission Date: 20210419
  Serious: Yes (Death, Other)
  Sender: FDA-Public Use
  Company Number: PL-KARYOPHARM-2020KPT001198

PATIENT
  Age: 67 Year
  Sex: Female
  Weight: 50 kg

DRUGS (15)
  1. SELINEXOR [Suspect]
     Active Substance: SELINEXOR
     Dosage: 60 MG
     Route: 048
     Dates: start: 20200929, end: 20201107
  2. BORTEZOMIB. [Concomitant]
     Active Substance: BORTEZOMIB
     Indication: PLASMA CELL MYELOMA
  3. MILURIT [Concomitant]
     Active Substance: ALLOPURINOL
     Indication: PROPHYLAXIS
     Dosage: 100 MG X 2
  4. NAXALGAN [Concomitant]
     Indication: NEUROPATHY PERIPHERAL
     Dosage: 150 MG X 2
  5. DEXAMETHASONE. [Concomitant]
     Active Substance: DEXAMETHASONE
     Indication: PLASMA CELL MYELOMA
  6. SELINEXOR [Suspect]
     Active Substance: SELINEXOR
     Indication: PLASMA CELL MYELOMA
     Dosage: 100 MG
     Route: 048
     Dates: start: 20200908, end: 20200914
  7. OLANZAPINE. [Concomitant]
     Active Substance: OLANZAPINE
     Indication: NAUSEA
     Dosage: 2.5 MG, QD
     Route: 048
  8. BISEPTOL [Concomitant]
     Active Substance: SULFAMETHOXAZOLE\TRIMETHOPRIM
     Indication: PRODUCT USED FOR UNKNOWN INDICATION
     Dosage: 960 MG
  9. CYCLONAMINE [Concomitant]
     Active Substance: ETHAMSYLATE
     Indication: HAEMORRHAGE PROPHYLAXIS
  10. KALIPOZ?PROLONGATUM [Concomitant]
     Active Substance: POTASSIUM CHLORIDE
     Indication: PROPHYLAXIS
     Dosage: 391 MG X 2
  11. NEUROVIT [CYANOCOBALAMIN;PYRIDOXINE HYDROCHLORIDE;THIAMINE MONONITRATE [Concomitant]
     Indication: NEUROPATHY PERIPHERAL
     Dosage: 1 UNK
  12. HASCOVIR [Concomitant]
     Indication: PRODUCT USED FOR UNKNOWN INDICATION
     Dosage: 400 MG X 2
  13. ACARD [ACETYLSALICYLIC ACID] [Concomitant]
     Active Substance: ASPIRIN
     Indication: THROMBOSIS PROPHYLAXIS
     Dosage: 75 MG
  14. NEOPARIN [Concomitant]
     Active Substance: ENOXAPARIN SODIUM
     Indication: THROMBOSIS PROPHYLAXIS
     Dosage: 40 MG
  15. SELINEXOR [Suspect]
     Active Substance: SELINEXOR
     Dosage: 80 MG
     Route: 048
     Dates: start: 20200915, end: 20200922

REACTIONS (7)
  - Bone pain [Not Recovered/Not Resolved]
  - Urinary tract infection [Not Recovered/Not Resolved]
  - Plasma cell myeloma [Fatal]
  - Femur fracture [Not Recovered/Not Resolved]
  - Spinal compression fracture [Not Recovered/Not Resolved]
  - Thrombocytopenia [Not Recovered/Not Resolved]
  - Anaemia [Recovered/Resolved]

NARRATIVE: CASE EVENT DATE: 20200915
